FAERS Safety Report 9861849 (Version 1)
Quarter: 2014Q1

REPORT INFORMATION
  Report Type: Other
  Country: GB (occurrence: GB)
  Receive Date: 20140203
  Receipt Date: 20140203
  Transmission Date: 20141002
  Serious: Yes (Other)
  Sender: FDA-Public Use
  Company Number: GB-TARO PHARMACEUTICALS U.S.A., INC-2014SUN00136

PATIENT
  Sex: Female

DRUGS (3)
  1. WARFARIN [Suspect]
     Indication: PULMONARY EMBOLISM
     Route: 065
  2. XARELTO [Interacting]
     Indication: PULMONARY EMBOLISM
     Dosage: UNK
     Route: 065
  3. XARELTO [Interacting]
     Dosage: UNK
     Route: 065

REACTIONS (4)
  - Drug interaction [Unknown]
  - Blood urine present [Unknown]
  - Mucosal haemorrhage [Unknown]
  - Off label use [Unknown]
